FAERS Safety Report 6068317-5 (Version None)
Quarter: 2009Q1

REPORT INFORMATION
  Report Type: 
  Country: None (occurrence: None)
  Receive Date: 20090206
  Receipt Date: 20090203
  Transmission Date: 20090719
  Serious: Yes (Death)
  Sender: FDA-Public Use
  Company Number: PHBS2009US00697

PATIENT
  Age: 23 Year
  Weight: 56 kg

DRUGS (5)
  1. CYCLOSPORINE [Suspect]
     Indication: CORD BLOOD TRANSPLANT THERAPY
     Dosage: UNK
  2. MYCOPHENOLATE MOFETIL [Suspect]
     Dosage: UNK
  3. CYCLOPHOSPHAMIDE [Concomitant]
     Dosage: 60 MG/KG, QD
     Route: 042
  4. FLUDARABINE PHOSPHATE [Concomitant]
     Dosage: 25 MG/M2, QD
     Route: 042
  5. IRRADIATION [Concomitant]
     Dosage: 167 CGY, BID

REACTIONS (1)
  - GRAFT VERSUS HOST DISEASE [None]
